FAERS Safety Report 10252680 (Version 2)
Quarter: 2015Q4

REPORT INFORMATION
  Report Type: Not Available
  Country: DK (occurrence: DK)
  Receive Date: 20140623
  Receipt Date: 20151211
  Transmission Date: 20160304
  Serious: Yes (Life-Threatening, Other)
  Sender: FDA-Public Use
  Company Number: DK-BEH-2014043274

PATIENT
  Age: 51 Year
  Sex: Male
  Weight: 76 kg

DRUGS (6)
  1. PRIVIGEN [Suspect]
     Active Substance: HUMAN IMMUNOGLOBULIN G
     Indication: GUILLAIN-BARRE SYNDROME
     Dosage: INFUSION RATE: 80 ML/HOUR
     Route: 042
     Dates: start: 20140221, end: 20140224
  2. INNOHEP [Concomitant]
     Active Substance: TINZAPARIN SODIUM
     Indication: THROMBOSIS PROPHYLAXIS
     Route: 058
     Dates: start: 20140221, end: 20140324
  3. ENACECOR [Concomitant]
     Route: 048
     Dates: start: 20140221, end: 20140317
  4. PRIVIGEN [Suspect]
     Active Substance: HUMAN IMMUNOGLOBULIN G
     Indication: GUILLAIN-BARRE SYNDROME
     Dosage: 120 MG/ML. INITIAL INFUSION RATE 0,3 ML/KG IN 60 MINUTES, CAN BE INCREASED TO MAX. 1 ML/KG/HOUR
     Route: 042
     Dates: start: 20140220
  5. ENACECOR [Concomitant]
     Indication: PRODUCT USED FOR UNKNOWN INDICATION
     Dosage: STRENGTH 20+12.5 MG
     Route: 048
     Dates: start: 20140219, end: 20150324
  6. GABAPENTIN. [Concomitant]
     Active Substance: GABAPENTIN

REACTIONS (1)
  - Haemolytic anaemia [Recovering/Resolving]

NARRATIVE: CASE EVENT DATE: 20140224
